FAERS Safety Report 24218404 (Version 3)
Quarter: 2024Q4

REPORT INFORMATION
  Report Type: Spontaneous
  Country: US (occurrence: US)
  Receive Date: 20240816
  Receipt Date: 20241008
  Transmission Date: 20250115
  Serious: Yes (Hospitalization)
  Sender: BIOVITRUM
  Company Number: US-BIOVITRUM-2024-US-010887

PATIENT
  Age: 80 Year
  Sex: Female

DRUGS (1)
  1. VONJO [Suspect]
     Active Substance: PACRITINIB
     Indication: Myelofibrosis
     Dosage: TWICE DAILY
     Route: 048
     Dates: start: 20231128

REACTIONS (7)
  - Oropharyngeal pain [Unknown]
  - Nasopharyngitis [Recovering/Resolving]
  - Dyspnoea [Unknown]
  - Peripheral swelling [Unknown]
  - Oedema peripheral [Unknown]
  - Adverse event [Unknown]
  - Off label use [Unknown]
